FAERS Safety Report 9308181 (Version 7)
Quarter: 2014Q1

REPORT INFORMATION
  Report Type: Report from Study
  Country: JP (occurrence: JP)
  Receive Date: 20130524
  Receipt Date: 20140130
  Transmission Date: 20141002
  Serious: Yes (Life-Threatening, Hospitalization)
  Sender: FDA-Public Use
  Company Number: JP-PFIZER INC-2013155765

PATIENT
  Age: 62 Year
  Sex: Female
  Weight: 46 kg

DRUGS (14)
  1. XALKORI [Suspect]
     Indication: NON-SMALL CELL LUNG CANCER
     Dosage: 250 MG, 2X/DAY
     Route: 048
     Dates: start: 20130408, end: 20130502
  2. XALKORI [Suspect]
     Dosage: 200 MG, 2X/DAY
     Route: 048
     Dates: start: 20130508, end: 20130519
  3. UBRETID [Suspect]
     Indication: NEUROGENIC BLADDER
     Dosage: 5 MG, 1X/DAY
     Route: 048
     Dates: start: 20130501, end: 20130502
  4. OXYCONTIN [Concomitant]
     Dosage: 10 MG, 2X/DAY
     Route: 048
     Dates: start: 20130407, end: 20130519
  5. NAIXAN [Concomitant]
     Dosage: 100 MG, 3X/DAY
     Route: 048
     Dates: start: 20130405
  6. NEXIUM [Concomitant]
     Dosage: 10 MG, 1X/DAY
     Route: 048
     Dates: start: 20130405
  7. PRIMPERAN [Concomitant]
     Dosage: 5 MG, 3X/DAY
     Route: 048
     Dates: start: 20130405, end: 20130519
  8. MAGLAX [Concomitant]
     Dosage: 990 MG, 3X/DAY
     Route: 048
     Dates: start: 20130408
  9. ZYPREXA [Concomitant]
     Dosage: 2.5 MG, 1X/DAY
     Route: 048
     Dates: start: 20130418, end: 20130422
  10. ZYPREXA [Concomitant]
     Dosage: 3.5 MG, 1X/DAY
     Route: 048
     Dates: start: 20130423, end: 20130426
  11. ZYPREXA [Concomitant]
     Dosage: 4 MG, 1X/DAY
     Route: 048
     Dates: start: 20130427, end: 20130519
  12. PURSENNID [Concomitant]
     Dosage: 24 MG, 1X/DAY
     Route: 048
     Dates: start: 20130420, end: 20130519
  13. EBRANTIL [Concomitant]
     Indication: NEUROGENIC BLADDER
     Dosage: 15 MG, 2X/DAY
     Route: 048
     Dates: start: 20130501, end: 20130502
  14. FIRSTCIN [Concomitant]
     Dosage: 1 G, 2X/DAY
     Dates: start: 20130422, end: 20130505

REACTIONS (2)
  - Interstitial lung disease [Recovering/Resolving]
  - Bradycardia [Recovered/Resolved]
